FAERS Safety Report 23812967 (Version 1)
Quarter: 2024Q2

REPORT INFORMATION
  Report Type: Spontaneous
  Country: US (occurrence: None)
  Receive Date: 20240503
  Receipt Date: 20240503
  Transmission Date: 20240716
  Serious: Yes (Other)
  Sender: FDA-Public Use
  Company Number: US-ROCHE-3555180

PATIENT
  Age: 24 Year
  Sex: Female

DRUGS (1)
  1. XOLAIR [Suspect]
     Active Substance: OMALIZUMAB
     Indication: Chronic spontaneous urticaria
     Dosage: ONE SINGLE DOSE
     Route: 058
     Dates: start: 202311, end: 202311

REACTIONS (3)
  - Urticaria [Unknown]
  - Lip swelling [Unknown]
  - Pruritus [Unknown]
